FAERS Safety Report 9773487 (Version 2)
Quarter: 2013Q4

REPORT INFORMATION
  Report Type: Report from Study
  Country: DE (occurrence: DE)
  Receive Date: 20131219
  Receipt Date: 20131219
  Transmission Date: 20140711
  Serious: Yes (Death, Other)
  Sender: FDA-Public Use
  Company Number: DE-ABBVIE-13P-062-1129583-00

PATIENT
  Age: 76 Year
  Sex: Male

DRUGS (1)
  1. TRENANTONE [Suspect]
     Indication: PROSTATE CANCER
     Route: 058
     Dates: start: 20120323, end: 20121012

REACTIONS (8)
  - Cardiac failure [Fatal]
  - Ketoacidosis [Fatal]
  - Dehydration [Fatal]
  - Cerebrovascular accident [Unknown]
  - Aphasia [Unknown]
  - Diabetes mellitus [Unknown]
  - Femur fracture [Unknown]
  - Fall [Unknown]
